FAERS Safety Report 10277800 (Version 3)
Quarter: 2014Q3

REPORT INFORMATION
  Report Type: Spontaneous
  Country: IT (occurrence: IT)
  Receive Date: 20140704
  Receipt Date: 20140910
  Transmission Date: 20150326
  Serious: Yes (Life-Threatening)
  Sender: FDA-Public Use
  Company Number: IT-ACCORD-024004

PATIENT
  Age: 60 Year
  Sex: Female
  Weight: 52 kg

DRUGS (5)
  1. ZANTAC [Concomitant]
     Active Substance: RANITIDINE HYDROCHLORIDE
     Indication: PREMEDICATION
     Dosage: ZANTAC- ^50 MG/ 5 ML SOLUTION FOR INJECTION FOR INTRAVENOUS USE ^ 10 VIALS ( GLAXOSMITHKLINE SPA )
     Route: 042
     Dates: start: 20140424, end: 20140520
  2. PACLITAXEL ACCORD [Suspect]
     Active Substance: PACLITAXEL
     Indication: OVARIAN CANCER
     Dosage: PACLITAXEL ACCORD HEALTHCARE ITALIA - ^6 MG/ML CONCENTRATE FOR SOLUTION FOR INFUSION
     Route: 042
     Dates: start: 20140429, end: 20140520
  3. GRANISETRON KABI [Concomitant]
     Active Substance: GRANISETRON
     Indication: PREMEDICATION
     Dosage: GRANISETRON KABI - ^1 MG/ML CONCENTRATE FOR SOLUTION FOR?INJECTION/INFUSION 5 GLASS VIALS 3 ML
     Route: 042
     Dates: start: 20140420, end: 20140520
  4. TRIMETON [Concomitant]
     Active Substance: CHLORPHENIRAMINE MALEATE
     Indication: PREMEDICATION
     Dosage: TRIMETON - ^10 MG/1 ML SOLUTION FOR INJECTION ^5 VIALS 1 ML( MSD ITALIA SRL)
     Route: 042
     Dates: start: 20140420, end: 20140520
  5. DESAMETASONE FOSFATO HOSPIRA [Concomitant]
     Indication: PREMEDICATION
     Dosage: DESAMETASONE FOSFATO HOSPIRA- ^8 MG / 2 ML SOLUTION FOR INJECTION ^ 1VIAL 2ML( HOSPIRA ITALIA SRL )
     Route: 042
     Dates: start: 20140420, end: 20140520

REACTIONS (5)
  - Feeling hot [Recovered/Resolved]
  - Headache [Recovered/Resolved]
  - Erythema [Recovered/Resolved]
  - Bronchospasm [Recovered/Resolved]
  - Rash [Recovered/Resolved]

NARRATIVE: CASE EVENT DATE: 20140429
